FAERS Safety Report 16340593 (Version 1)
Quarter: 2019Q2

REPORT INFORMATION
  Report Type: Spontaneous
  Country: FR (occurrence: FR)
  Receive Date: 20190522
  Receipt Date: 20190522
  Transmission Date: 20190711
  Serious: Yes (Other)
  Sender: FDA-Public Use
  Company Number: FR-ASTRAZENECA-2019SE74643

PATIENT
  Sex: Female

DRUGS (2)
  1. SYMBICORT [Suspect]
     Active Substance: BUDESONIDE\FORMOTEROL FUMARATE DIHYDRATE
     Indication: ASTHMA
     Dosage: 400 MCG PER DOSE, ONE INHALATION TWICE DAILY
     Route: 055
  2. EBASTINE [Concomitant]
     Active Substance: EBASTINE

REACTIONS (3)
  - Asthma [Recovered/Resolved]
  - Product use issue [Unknown]
  - Malaise [Recovered/Resolved]
